FAERS Safety Report 6103345-2 (Version None)
Quarter: 2009Q1

REPORT INFORMATION
  Report Type: 
  Country: None (occurrence: None)
  Receive Date: 20090305
  Receipt Date: 20090202
  Transmission Date: 20090719
  Serious: No
  Sender: FDA-Public Use
  Company Number: US-BAYER-200912726NA

PATIENT
  Sex: Female

DRUGS (1)
  1. MIRENA [Suspect]
     Indication: DRUG USE FOR UNKNOWN INDICATION
     Route: 015
     Dates: start: 20081101

REACTIONS (5)
  - EYE PAIN [None]
  - NASAL CONGESTION [None]
  - NECK PAIN [None]
  - SINUS HEADACHE [None]
  - SINUSITIS [None]
